FAERS Safety Report 8805046 (Version 2)
Quarter: 2012Q4

REPORT INFORMATION
  Report Type: 
  Country: US (occurrence: US)
  Receive Date: 20120924
  Receipt Date: 20121015
  Transmission Date: 20130627
  Serious: Yes (Other)
  Sender: FDA-Public Use
  Company Number: CHPA2012US010140

PATIENT
  Age: 70 Year
  Sex: Female

DRUGS (3)
  1. PREVACID 24HR 15MG [Suspect]
     Indication: GASTROOESOPHAGEAL REFLUX DISEASE
     Dosage: 15 mg, QD
     Route: 048
     Dates: start: 2010, end: 201209
  2. PREVACID 24HR 15MG [Suspect]
     Dosage: Unk, Unk
     Route: 048
     Dates: start: 20121010
  3. PHENOBARBITAL [Concomitant]
     Route: 048

REACTIONS (15)
  - Diverticulum [Recovered/Resolved]
  - Hernia [Recovered/Resolved]
  - Dysentery [Recovered/Resolved]
  - Flank pain [Not Recovered/Not Resolved]
  - Muscle spasms [Not Recovered/Not Resolved]
  - Malaise [Unknown]
  - Dry mouth [Not Recovered/Not Resolved]
  - Insomnia [Not Recovered/Not Resolved]
  - Hot flush [Not Recovered/Not Resolved]
  - Lymphadenopathy [Not Recovered/Not Resolved]
  - Frequent bowel movements [Unknown]
  - Erythema [Unknown]
  - Paraesthesia [Unknown]
  - Off label use [Unknown]
  - Incorrect drug administration duration [Unknown]
